FAERS Safety Report 21977812 (Version 1)
Quarter: 2023Q1

REPORT INFORMATION
  Report Type: Spontaneous
  Country: US (occurrence: None)
  Receive Date: 20230209
  Receipt Date: 20230209
  Transmission Date: 20230418
  Serious: Yes (Other)
  Sender: FDA-Public Use
  Company Number: None

PATIENT
  Age: 48 Year
  Sex: Male

DRUGS (3)
  1. TESTOSTERONE CYPIONATE [Suspect]
     Active Substance: TESTOSTERONE CYPIONATE
     Indication: Hypogonadism
     Dosage: OTHER FREQUENCY : WEEKLY;?
     Route: 030
     Dates: start: 20230118, end: 20230118
  2. Gonadorelin 1mg/ml Injection [Concomitant]
  3. Anastrozole 1mg Tablet [Concomitant]

REACTIONS (3)
  - Injection related reaction [None]
  - Therapy cessation [None]
  - Discomfort [None]

NARRATIVE: CASE EVENT DATE: 20230118
